FAERS Safety Report 5129080-5 (Version None)
Quarter: 2006Q4

REPORT INFORMATION
  Report Type: 
  Country: None (occurrence: None)
  Receive Date: 20061016
  Receipt Date: 20061016
  Transmission Date: 20070319
  Serious: Yes (Other)
  Sender: FDA-Public Use
  Company Number: None

PATIENT
  Age: 47 Year
  Sex: Female
  Weight: 52.6173 kg

DRUGS (1)
  1. CYCLOBENZAPRINE HCL [Suspect]
     Indication: NERVE COMPRESSION
     Dosage: 10MG   1X PER DAY   PO
     Route: 048
     Dates: start: 20060919, end: 20061004

REACTIONS (16)
  - ANXIETY [None]
  - ASTHENIA [None]
  - BODY TEMPERATURE INCREASED [None]
  - CONFUSIONAL STATE [None]
  - DEHYDRATION [None]
  - DIZZINESS [None]
  - DRY MOUTH [None]
  - DYSGEUSIA [None]
  - FATIGUE [None]
  - HYPERHIDROSIS [None]
  - NERVOUSNESS [None]
  - RETCHING [None]
  - THERAPY CESSATION [None]
  - TREMOR [None]
  - VIRAL INFECTION [None]
  - VOMITING [None]
